FAERS Safety Report 19696597 (Version 3)
Quarter: 2021Q3

REPORT INFORMATION
  Report Type: Report from Study
  Country: CN (occurrence: CN)
  Receive Date: 20210812
  Receipt Date: 20210927
  Transmission Date: 20211014
  Serious: Yes (Hospitalization)
  Sender: FDA-Public Use
  Company Number: CN-GILEAD-2021-0543860

PATIENT
  Sex: Male
  Weight: 67 kg

DRUGS (8)
  1. SHU GAN NING [Concomitant]
     Indication: HEPATIC FUNCTION ABNORMAL
     Route: 041
     Dates: start: 20210629, end: 20210629
  2. ELVITEGRAVIR/COBICISTAT/EMTRICITABINE/TENOFOVIR ALAFENAMIDE [Suspect]
     Active Substance: COBICISTAT\ELVITEGRAVIR\EMTRICITABINE\TENOFOVIR
     Indication: HIV INFECTION
     Dosage: 1 DOSAGE FORM, QD
     Route: 048
     Dates: start: 20210119, end: 20210629
  3. COLCHICINE. [Concomitant]
     Active Substance: COLCHICINE
     Indication: GOUT
     Dosage: UNK
     Route: 048
     Dates: start: 202011
  4. BOZHI GLYCOPEPTIDE [Concomitant]
     Indication: HEPATIC FUNCTION ABNORMAL
     Route: 041
     Dates: start: 20210629, end: 20210726
  5. ADEMETIONINE 1,4?BUTANEDISULFONATE [Concomitant]
     Active Substance: ADEMETIONINE BUTANEDISULFONATE
     Indication: HEPATIC FUNCTION ABNORMAL
     Route: 042
     Dates: start: 20210629, end: 20210814
  6. COMPOUND AMMONIUM GLYCYRRHIZINATE S [Concomitant]
     Indication: HEPATIC FUNCTION ABNORMAL
     Route: 041
     Dates: start: 20210629, end: 20210706
  7. URSODEOXYCHOLIC ACID [Concomitant]
     Active Substance: URSODIOL
     Indication: HEPATIC FAILURE
     Route: 048
     Dates: start: 20210629, end: 20210814
  8. DIISOPROPYLAMINE DICHLOROACETATE;GLUCONATE SODIUM [Concomitant]
     Indication: HEPATIC FUNCTION ABNORMAL
     Route: 041
     Dates: start: 20210629, end: 20210814

REACTIONS (2)
  - Hypokalaemia [Not Recovered/Not Resolved]
  - Subacute hepatic failure [Not Recovered/Not Resolved]

NARRATIVE: CASE EVENT DATE: 20210629
